FAERS Safety Report 8072975-3 (Version None)
Quarter: 2011Q4

REPORT INFORMATION
  Report Type: 
  Country: None (occurrence: None)
  Receive Date: 20111221
  Receipt Date: 20110913
  Transmission Date: 20120403
  Serious: Yes (Hospitalization)
  Sender: FDA-Public Use
  Company Number: PHEH2011US02855

PATIENT
  Age: 71 Year
  Sex: Female

DRUGS (1)
  1. EXJADE [Suspect]
     Dosage: 500 MG, QD, ORAL
     Route: 048

REACTIONS (2)
  - DIARRHOEA [None]
  - INFECTION [None]
